FAERS Safety Report 7681423-4 (Version None)
Quarter: 2011Q3

REPORT INFORMATION
  Report Type: 
  Country: None (occurrence: None)
  Receive Date: 20110812
  Receipt Date: 20110804
  Transmission Date: 20111222
  Serious: Yes (Hospitalization, Other)
  Sender: FDA-Public Use
  Company Number: US-ROCHE-786763

PATIENT
  Sex: Male
  Weight: 63.5 kg

DRUGS (1)
  1. ACCUTANE [Suspect]
     Indication: ACNE
     Route: 065
     Dates: start: 19860101, end: 19880101

REACTIONS (10)
  - INJURY [None]
  - INFLAMMATORY BOWEL DISEASE [None]
  - PERIRECTAL ABSCESS [None]
  - ARTHRITIS [None]
  - DEPRESSION [None]
  - OSTEOPENIA [None]
  - CROHN'S DISEASE [None]
  - ANAL FISTULA [None]
  - INTESTINAL OBSTRUCTION [None]
  - IRRITABLE BOWEL SYNDROME [None]
